FAERS Safety Report 6245011-9 (Version None)
Quarter: 2009Q2

REPORT INFORMATION
  Report Type: 
  Country: None (occurrence: None)
  Receive Date: 20090619
  Receipt Date: 20090323
  Transmission Date: 20091009
  Serious: No
  Sender: FDA-Public Use
  Company Number: ALL1-2009-00572

PATIENT
  Age: 9 Year
  Sex: Female
  Weight: 12.3378 kg

DRUGS (2)
  1. VYVANSE [Suspect]
     Indication: ATTENTION DEFICIT/HYPERACTIVITY DISORDER
     Dosage: 40 MG, 1X/DAY:QD, ORAL; 30 MG, 1X/DAY:QD, ORAL
     Route: 048
     Dates: start: 20090227, end: 20090228
  2. VYVANSE [Suspect]
     Indication: ATTENTION DEFICIT/HYPERACTIVITY DISORDER
     Dosage: 40 MG, 1X/DAY:QD, ORAL; 30 MG, 1X/DAY:QD, ORAL
     Route: 048
     Dates: start: 20090101

REACTIONS (2)
  - IMPULSIVE BEHAVIOUR [None]
  - INSOMNIA [None]
